FAERS Safety Report 17345659 (Version 2)
Quarter: 2020Q2

REPORT INFORMATION
  Report Type: Spontaneous
  Country: CA (occurrence: CA)
  Receive Date: 20200129
  Receipt Date: 20200427
  Transmission Date: 20200713
  Serious: Yes (Other)
  Sender: FDA-Public Use
  Company Number: CA-TEVA-2020-CA-1176307

PATIENT
  Age: 61 Year
  Sex: Male

DRUGS (8)
  1. NITROGLYCERIN. [Suspect]
     Active Substance: NITROGLYCERIN
     Indication: POST CARDIAC ARREST SYNDROME
     Route: 065
  2. HEPARIN [Suspect]
     Active Substance: HEPARIN SODIUM
     Indication: POST CARDIAC ARREST SYNDROME
     Route: 065
  3. PERINDOPRIL [Suspect]
     Active Substance: PERINDOPRIL
     Indication: POST CARDIAC ARREST SYNDROME
     Route: 065
  4. ASA [Suspect]
     Active Substance: ASPIRIN
     Indication: POST CARDIAC ARREST SYNDROME
     Route: 065
  5. METOPROLOL. [Suspect]
     Active Substance: METOPROLOL
     Indication: POST CARDIAC ARREST SYNDROME
     Route: 065
  6. ACETAMINOPHEN. [Suspect]
     Active Substance: ACETAMINOPHEN
     Indication: POST CARDIAC ARREST SYNDROME
     Dosage: 2 GRAM DAILY;
     Route: 065
  7. TICAGRELOR. [Suspect]
     Active Substance: TICAGRELOR
     Indication: POST CARDIAC ARREST SYNDROME
     Route: 065
  8. PANTOPRAZOLE [Suspect]
     Active Substance: PANTOPRAZOLE
     Indication: POST CARDIAC ARREST SYNDROME
     Route: 065

REACTIONS (3)
  - Liver injury [Recovering/Resolving]
  - Product use in unapproved indication [Recovering/Resolving]
  - Off label use [Unknown]
